FAERS Safety Report 10341572 (Version 1)
Quarter: 2014Q3

REPORT INFORMATION
  Report Type: Spontaneous
  Country: US (occurrence: None)
  Receive Date: 20140723
  Receipt Date: 20140723
  Transmission Date: 20150326
  Serious: No
  Sender: FDA-Public Use
  Company Number: 14AE031

PATIENT
  Sex: Male

DRUGS (1)
  1. SAFEWAY IBUPROFEN 200 MG [Suspect]
     Active Substance: IBUPROFEN
     Dates: start: 20140710

REACTIONS (3)
  - Accidental exposure to product [None]
  - Chromaturia [None]
  - Product commingling [None]

NARRATIVE: CASE EVENT DATE: 20140710
